FAERS Safety Report 11313325 (Version 1)
Quarter: 2015Q3

REPORT INFORMATION
  Report Type: Spontaneous
  Country: US (occurrence: None)
  Receive Date: 20150724
  Receipt Date: 20150724
  Transmission Date: 20151125
  Serious: Yes (Hospitalization)
  Sender: FDA-Public Use
  Company Number: None

PATIENT
  Age: 78 Year
  Sex: Male

DRUGS (10)
  1. LISINOPRIL. [Concomitant]
     Active Substance: LISINOPRIL
  2. PROLIA [Concomitant]
     Active Substance: DENOSUMAB
  3. GLIPIZIDE. [Concomitant]
     Active Substance: GLIPIZIDE
  4. ELIGARD [Concomitant]
     Active Substance: LEUPROLIDE ACETATE
  5. MULTIVITAMIN [Concomitant]
     Active Substance: VITAMINS
  6. TAMSULOSIN [Concomitant]
     Active Substance: TAMSULOSIN
  7. XTANDI [Suspect]
     Active Substance: ENZALUTAMIDE
     Indication: PROSTATE CANCER
     Dosage: 4 CAPSULES
     Route: 048
     Dates: start: 20150202, end: 20150723
  8. LANSOPRAZOLE. [Concomitant]
     Active Substance: LANSOPRAZOLE
  9. SOTALOL. [Concomitant]
     Active Substance: SOTALOL
  10. ATORVASTATIN [Concomitant]
     Active Substance: ATORVASTATIN

REACTIONS (3)
  - Nausea [None]
  - Cholelithiasis [None]
  - Abdominal pain upper [None]

NARRATIVE: CASE EVENT DATE: 20150501
